FAERS Safety Report 17443905 (Version 1)
Quarter: 2020Q1

REPORT INFORMATION
  Report Type: Spontaneous
  Country: US (occurrence: US)
  Receive Date: 20200220
  Receipt Date: 20200220
  Transmission Date: 20200409
  Serious: Yes (Other)
  Sender: FDA-Public Use
  Company Number: None

PATIENT
  Age: 64 Year
  Sex: Female
  Weight: 60 kg

DRUGS (5)
  1. CIPROFLOXACIN. [Suspect]
     Active Substance: CIPROFLOXACIN
     Indication: URINARY TRACT INFECTION
     Route: 048
     Dates: start: 20200202, end: 20200206
  2. CARBAMAZEPINE 400MG BID [Concomitant]
  3. SIMVASTATIN 30MG DAILY [Concomitant]
  4. TAMSULOSIN 0.4MG DAILY [Concomitant]
  5. ZOLEDRONIC ACID 5MG IV ANNUALLY [Concomitant]

REACTIONS (1)
  - Rash [None]

NARRATIVE: CASE EVENT DATE: 20200206
